FAERS Safety Report 8410034-8 (Version None)
Quarter: 2012Q2

REPORT INFORMATION
  Report Type: 
  Country: None (occurrence: None)
  Receive Date: 20120605
  Receipt Date: 20120521
  Transmission Date: 20120825
  Serious: Yes (Hospitalization, Other)
  Sender: FDA-Public Use
  Company Number: FR-UCBSA-057838

PATIENT
  Age: 61 Year
  Sex: Male

DRUGS (22)
  1. AMIKACIN [Concomitant]
     Indication: PNEUMONIA
     Dates: start: 20120308
  2. ORBENIN CAP [Concomitant]
     Dates: start: 20120310
  3. HALDOL [Concomitant]
     Dosage: DAILY DOSE: 5 MG
     Route: 048
  4. PHENOBARBITAL TAB [Concomitant]
     Indication: STATUS EPILEPTICUS
     Dates: start: 20120305, end: 20120320
  5. VANCOMYCIN [Concomitant]
     Dates: start: 20120309, end: 20120310
  6. KEPPRA [Suspect]
     Dosage: DAILY DOSE: 500 MG
     Route: 048
     Dates: end: 20120215
  7. DEPAKOTE [Suspect]
     Indication: BIPOLAR DISORDER
     Route: 048
     Dates: start: 20120215, end: 20120227
  8. AKINETON [Concomitant]
     Route: 048
  9. IXEL [Concomitant]
     Route: 048
  10. LITHIUM CARBONATE [Concomitant]
     Dosage: DAILY DOSE: 400 MG
     Route: 048
     Dates: start: 20120215, end: 20120215
  11. INSULIN [Concomitant]
     Dates: start: 20120308
  12. DIPRIVAN [Concomitant]
     Indication: SEDATION
     Dates: start: 20120305, end: 20120311
  13. MINIRIN [Concomitant]
  14. LITHIUM CARBONATE [Concomitant]
  15. ROCEPHIN [Concomitant]
     Indication: PNEUMONIA
     Dates: start: 20120308, end: 20120308
  16. BENZODIAZEPINES [Concomitant]
     Dates: start: 20120308
  17. LERCANIDIPINE [Concomitant]
     Dosage: DAILY DOSE: 20 MG
     Route: 048
  18. CLONAZEPAM [Concomitant]
     Indication: STATUS EPILEPTICUS
     Dates: start: 20120305
  19. IMOVANE [Concomitant]
     Dosage: 7.5 MG
     Route: 048
     Dates: start: 20120121
  20. KEPPRA [Suspect]
     Route: 048
     Dates: start: 20120216, end: 20120320
  21. TAZOBACTAM [Concomitant]
     Indication: PNEUMONIA
     Dates: start: 20120308, end: 20120309
  22. AUGMENTIN [Concomitant]
     Dates: start: 20120312, end: 20120315

REACTIONS (15)
  - CONFUSIONAL STATE [None]
  - ENCEPHALOPATHY [None]
  - COGNITIVE DISORDER [None]
  - TREMOR [None]
  - CYTOLYTIC HEPATITIS [None]
  - STATUS EPILEPTICUS [None]
  - PYREXIA [None]
  - SEROTONIN SYNDROME [None]
  - MEMORY IMPAIRMENT [None]
  - BALANCE DISORDER [None]
  - ABNORMAL BEHAVIOUR [None]
  - CENTRAL NERVOUS SYSTEM INFECTION [None]
  - EXTRAPYRAMIDAL DISORDER [None]
  - PNEUMONIA [None]
  - DISORIENTATION [None]
